FAERS Safety Report 25918892 (Version 1)
Quarter: 2025Q4

REPORT INFORMATION
  Report Type: Spontaneous
  Country: US (occurrence: US)
  Receive Date: 20251014
  Receipt Date: 20251014
  Transmission Date: 20260119
  Serious: No
  Sender: Kenvue
  Company Number: US-KENVUE-20250910305

PATIENT
  Sex: Female

DRUGS (23)
  1. TYLENOL [Suspect]
     Active Substance: ACETAMINOPHEN
     Indication: Pain
     Route: 065
  2. REMODULIN [Concomitant]
     Active Substance: TREPROSTINIL
     Indication: Pulmonary arterial hypertension
     Dosage: 0.023 MICROGRAM/KILOGRAM
     Route: 042
     Dates: start: 202410, end: 202411
  3. REMODULIN [Concomitant]
     Active Substance: TREPROSTINIL
     Dosage: 0.0236 MICROGRAM/KILOGRAM, DELIVERED VIA REMUNITY PUMP [PHARMACY FILLED]
     Route: 058
     Dates: start: 202411
  4. REMODULIN [Concomitant]
     Active Substance: TREPROSTINIL
     Dosage: 0.02507 MICROGRAM/KILOGRAM
     Route: 058
     Dates: start: 2024
  5. REMODULIN [Concomitant]
     Active Substance: TREPROSTINIL
     Dosage: 0.02950 MICROGRAM/KILOGRAM
     Route: 058
  6. REMODULIN [Concomitant]
     Active Substance: TREPROSTINIL
     Dosage: 0.03245 MICROGRAM/KILOGRAM
     Route: 058
  7. REMODULIN [Concomitant]
     Active Substance: TREPROSTINIL
     Dosage: 0.03540 MICROGRAM/KILOGRAM
     Route: 058
  8. REMODULIN [Concomitant]
     Active Substance: TREPROSTINIL
     Dosage: 0.03835 MICROGRAM/KILOGRAM
     Route: 058
  9. REMODULIN [Concomitant]
     Active Substance: TREPROSTINIL
     Dosage: 0.03982 MICROGRAM/KILOGRAM
     Route: 058
  10. REMODULIN [Concomitant]
     Active Substance: TREPROSTINIL
     Dosage: UNK
     Route: 058
     Dates: start: 202411
  11. REMODULIN [Concomitant]
     Active Substance: TREPROSTINIL
     Dosage: UNK
     Route: 058
     Dates: end: 2025
  12. REMODULIN [Concomitant]
     Active Substance: TREPROSTINIL
     Dosage: UNK
  13. ORENITRAM [Concomitant]
     Active Substance: TREPROSTINIL
     Indication: Pulmonary arterial hypertension
     Dosage: 5 MILLIGRAM, THRICE A DAY
     Route: 048
     Dates: start: 2025
  14. ORENITRAM [Concomitant]
     Active Substance: TREPROSTINIL
     Dosage: 5.5 MILLIGRAM, THRICE A DAY (TAKING 2 TABLETS OF 0.25MG AND 1 TABLET OF 5MG)
     Route: 048
     Dates: start: 2025
  15. ORENITRAM [Concomitant]
     Active Substance: TREPROSTINIL
     Dosage: 0.50 MILLIGRAM, THRICE A DAY
     Route: 048
     Dates: start: 2025
  16. ORENITRAM [Concomitant]
     Active Substance: TREPROSTINIL
     Dosage: UNK
     Route: 048
     Dates: start: 202507
  17. WINREVAIR [Concomitant]
     Active Substance: SOTATERCEPT-CSRK
     Indication: Pulmonary arterial hypertension
     Dosage: UNK
     Route: 065
     Dates: start: 202506, end: 202506
  18. AMOXICILLIN [Concomitant]
     Active Substance: AMOXICILLIN
     Indication: Product used for unknown indication
     Dosage: UNK
     Route: 065
     Dates: start: 202506, end: 202506
  19. IMODIUM [Concomitant]
     Active Substance: LOPERAMIDE HYDROCHLORIDE
     Indication: Product used for unknown indication
     Dosage: UNK
     Route: 065
     Dates: start: 202506, end: 202506
  20. LIDOCAINE\PRILOCAINE [Concomitant]
     Active Substance: LIDOCAINE\PRILOCAINE
     Indication: Product used for unknown indication
     Route: 065
  21. TRIAMCINOLONE ACETONIDE [Concomitant]
     Active Substance: TRIAMCINOLONE ACETONIDE
     Indication: Product used for unknown indication
     Route: 065
  22. C-formulation D w/Clonidine [Concomitant]
     Indication: Product used for unknown indication
     Dosage: UNK
     Route: 065
  23. UNSPECIFIED INGREDIENT [Concomitant]
     Active Substance: UNSPECIFIED INGREDIENT
     Indication: Pain
     Route: 065

REACTIONS (1)
  - Off label use [Unknown]
